FAERS Safety Report 4369932-7 (Version None)
Quarter: 2004Q2

REPORT INFORMATION
  Report Type: 
  Country: None (occurrence: None)
  Receive Date: 20040603
  Receipt Date: 20040526
  Transmission Date: 20050107
  Serious: Yes (Hospitalization)
  Sender: FDA-Public Use
  Company Number: BE-BRISTOL-MYERS SQUIBB COMPANY-12596920

PATIENT

DRUGS (1)
  1. CEFEPIME FOR INJ [Suspect]
     Route: 042

REACTIONS (1)
  - NEPHRITIS [None]
